FAERS Safety Report 7447670-1 (Version None)
Quarter: 2011Q2

REPORT INFORMATION
  Report Type: 
  Country: None (occurrence: None)
  Receive Date: 20110429
  Receipt Date: 20110105
  Transmission Date: 20111010
  Serious: No
  Sender: FDA-Public Use
  Company Number: US-ASTRAZENECA-2011SE00985

PATIENT
  Sex: Female

DRUGS (2)
  1. NEXIUM [Suspect]
     Route: 048
  2. SYMBICORT [Suspect]
     Dosage: 160/4.5 MCG 2 PUFFS
     Route: 055

REACTIONS (3)
  - MALAISE [None]
  - NASOPHARYNGITIS [None]
  - DYSPHONIA [None]
